FAERS Safety Report 15720821 (Version 1)
Quarter: 2018Q4

REPORT INFORMATION
  Report Type: Spontaneous
  Country: GB (occurrence: GB)
  Receive Date: 20181213
  Receipt Date: 20181213
  Transmission Date: 20190205
  Serious: Yes (Death, Life-Threatening, Other)
  Sender: FDA-Public Use
  Company Number: GB-MYLANLABS-2018M1093051

PATIENT
  Age: 26 Day
  Sex: Female

DRUGS (17)
  1. FLUCONAZOLE. [Suspect]
     Active Substance: FLUCONAZOLE
     Indication: FUNGAL INFECTION
     Dosage: UNK
     Route: 065
  2. AMPICILLIN [Concomitant]
     Active Substance: AMPICILLIN
     Indication: ANTIBIOTIC PROPHYLAXIS
     Dosage: UNK
     Route: 065
  3. ALPROSTADIL. [Concomitant]
     Active Substance: ALPROSTADIL
     Indication: HYPOPLASTIC LEFT HEART SYNDROME
     Dosage: UNK
  4. PIPERACILLIN/TAZOBACTAM [Suspect]
     Active Substance: PIPERACILLIN SODIUM\TAZOBACTAM SODIUM
     Indication: FUNGAL PERITONITIS
     Dosage: 75 MILLIGRAM/KILOGRAM, Q12H
  5. AMPHOTERICIN B. [Suspect]
     Active Substance: AMPHOTERICIN B
     Indication: FUNGAL INFECTION
  6. CASPOFUNGIN [Suspect]
     Active Substance: CASPOFUNGIN
     Indication: FUNGAL PERITONITIS
  7. GENTAMICIN. [Concomitant]
     Active Substance: GENTAMICIN
     Indication: ANTIBIOTIC THERAPY
  8. CASPOFUNGIN [Suspect]
     Active Substance: CASPOFUNGIN
     Indication: FUNGAL INFECTION
     Dosage: 14 MG,QD
     Route: 065
  9. FLUCONAZOLE. [Suspect]
     Active Substance: FLUCONAZOLE
     Indication: SEPSIS NEONATAL
     Dosage: UNK
     Route: 065
  10. FLUCONAZOLE. [Suspect]
     Active Substance: FLUCONAZOLE
     Indication: FUNGAL PERITONITIS
  11. MILRINONE [Concomitant]
     Active Substance: MILRINONE
     Indication: HYPOPLASTIC LEFT HEART SYNDROME
     Dosage: UNK
  12. GENTAMICIN. [Concomitant]
     Active Substance: GENTAMICIN
     Indication: NEONATAL INFECTION
     Dosage: UNK
     Route: 065
  13. AMPICILLIN [Concomitant]
     Active Substance: AMPICILLIN
     Indication: NEONATAL INFECTION
  14. VANCOMYCIN [Concomitant]
     Active Substance: VANCOMYCIN
     Indication: SEPSIS NEONATAL
     Dosage: UNK
  15. MEROPENEM. [Concomitant]
     Active Substance: MEROPENEM
     Indication: SEPSIS NEONATAL
     Dosage: UNK
  16. FLUCLOXACILLIN [Concomitant]
     Active Substance: FLUCLOXACILLIN
     Indication: ANTIBIOTIC THERAPY
     Dosage: UNK
     Route: 065
  17. AMPHOTERICIN B. [Suspect]
     Active Substance: AMPHOTERICIN B
     Indication: FUNGAL PERITONITIS
     Dosage: 3 MILLIGRAM/KILOGRAM, QD
     Route: 065

REACTIONS (8)
  - Generalised oedema [Fatal]
  - Septic shock [Fatal]
  - Multiple organ dysfunction syndrome [Fatal]
  - Condition aggravated [Fatal]
  - Peritonitis [Fatal]
  - Drug resistance [Fatal]
  - Capillary leak syndrome [Fatal]
  - Fungal infection [Fatal]
